FAERS Safety Report 7979869-X (Version None)
Quarter: 2011Q4

REPORT INFORMATION
  Report Type: 
  Country: None (occurrence: None)
  Receive Date: 20111214
  Receipt Date: 20111124
  Transmission Date: 20120403
  Serious: Yes (Death, Hospitalization)
  Sender: FDA-Public Use
  Company Number: DE-ROCHE-792374

PATIENT
  Sex: Female
  Weight: 75 kg

DRUGS (2)
  1. XELODA [Suspect]
     Indication: BREAST CANCER
     Dosage: 1800 MG, UNK,DATE OF LAST DOSE OF CAPECITABINE 07 JUL 2011
     Route: 048
  2. LAPATINIB [Suspect]
     Indication: BREAST CANCER
     Dosage: DATE OF LAST DOSE OF LAPATINIB 14 JUL 2011
     Route: 048

REACTIONS (1)
  - CORONARY ARTERY DISEASE [None]
